FAERS Safety Report 4455862-9 (Version None)
Quarter: 2004Q3

REPORT INFORMATION
  Report Type: 
  Country: None (occurrence: None)
  Receive Date: 20040922
  Receipt Date: 20040817
  Transmission Date: 20050211
  Serious: Yes (Hospitalization)
  Sender: FDA-Public Use
  Company Number: JP-MERCK-0408USA01780

PATIENT
  Age: 83 Year
  Sex: Female

DRUGS (10)
  1. ZYLORIC [Suspect]
     Route: 048
     Dates: end: 20040724
  2. CINAL [Concomitant]
     Route: 048
  3. DIPYRIDAMOLE [Concomitant]
     Route: 048
  4. PEPCID RPD [Suspect]
     Route: 048
     Dates: end: 20040726
  5. LASIX [Concomitant]
     Route: 048
  6. NEUROTROPIN [Concomitant]
     Route: 048
  7. PREDONINE [Concomitant]
     Route: 048
  8. FERROMIA [Concomitant]
     Route: 048
     Dates: end: 20040720
  9. SOLON [Concomitant]
     Route: 048
  10. ALDACTONE [Concomitant]
     Route: 048

REACTIONS (3)
  - AGRANULOCYTOSIS [None]
  - DRUG ERUPTION [None]
  - ORAL CANDIDIASIS [None]
